FAERS Safety Report 15214549 (Version 1)
Quarter: 2018Q4

REPORT INFORMATION
  Report Type: Spontaneous
  Country: AT (occurrence: AT)
  Receive Date: 20180730
  Receipt Date: 20180730
  Transmission Date: 20190204
  Serious: Yes (Hospitalization)
  Sender: FDA-Public Use
  Company Number: PHHY2018AT056316

PATIENT
  Age: 58 Year
  Sex: Female

DRUGS (1)
  1. CLAVAMOX DUO [Suspect]
     Active Substance: AMOXICILLIN\CLAVULANATE POTASSIUM
     Indication: INFECTION
     Dosage: 1 DF, UNK
     Route: 048
     Dates: start: 20180322, end: 20180322

REACTIONS (7)
  - Vomiting [Recovered/Resolved]
  - Sensation of foreign body [Recovered/Resolved]
  - Burning sensation [Recovered/Resolved]
  - Dyspnoea [Recovered/Resolved]
  - Peripheral swelling [Recovered/Resolved]
  - Flushing [Recovered/Resolved]
  - Rash erythematous [Recovered/Resolved]

NARRATIVE: CASE EVENT DATE: 20180322
